FAERS Safety Report 7517415-5 (Version None)
Quarter: 2011Q2

REPORT INFORMATION
  Report Type: 
  Country: None (occurrence: None)
  Receive Date: 20110601
  Receipt Date: 20110524
  Transmission Date: 20111010
  Serious: Yes (Hospitalization)
  Sender: FDA-Public Use
  Company Number: CZ-GENENTECH-319370

PATIENT
  Age: 15 Year
  Sex: Female
  Weight: 57 kg

DRUGS (11)
  1. VIGANTOL [Concomitant]
     Indication: OSTEOPOROSIS PROPHYLAXIS
     Dosage: 2 GTT, QD
     Dates: start: 20080901
  2. CARBOPLATIN [Suspect]
     Indication: PRODUCT USED FOR UNKNOWN INDICATION
     Dosage: 1016 MG, UNK
     Dates: start: 20091106
  3. AMPHOTERICIN B [Concomitant]
     Indication: MUCOSAL INFLAMMATION
     Dosage: 1 ML, TID
     Dates: start: 20091118
  4. VORICONAZOLE [Suspect]
     Indication: ASPERGILLOSIS
     Dosage: 350 MG, BID
     Route: 042
     Dates: start: 20091026
  5. VORICONAZOLE [Suspect]
     Dosage: 230 MG, BID
     Route: 042
     Dates: start: 20091027
  6. ETOPOSIDE [Suspect]
     Indication: PRODUCT USED FOR UNKNOWN INDICATION
     Dosage: 160 MG, QD
     Dates: start: 20091106
  7. POTASSIUM CHLORIDE [Concomitant]
     Indication: HYPOKALAEMIA
     Dosage: UNK
     Dates: start: 20080901
  8. RITUXAN [Suspect]
     Indication: NON-HODGKIN'S LYMPHOMA
     Dosage: 600 MG, QD
     Dates: start: 20091104
  9. IFOSFAMIDE [Suspect]
     Indication: PRODUCT USED FOR UNKNOWN INDICATION
     Dosage: 4800 MG, QD
     Dates: start: 20091106
  10. VITACALCIN [Concomitant]
     Indication: OSTEOPOROSIS PROPHYLAXIS
     Dosage: 250 MG, BID
     Route: 048
     Dates: start: 20080901
  11. CODEINE SULFATE [Concomitant]
     Indication: COUGH
     Dosage: 15 MG, QD
     Dates: start: 20091026

REACTIONS (1)
  - EPISTAXIS [None]
